FAERS Safety Report 8464392-9 (Version None)
Quarter: 2012Q2

REPORT INFORMATION
  Report Type: 
  Country: None (occurrence: None)
  Receive Date: 20120626
  Receipt Date: 20120613
  Transmission Date: 20120825
  Serious: Yes (Hospitalization)
  Sender: FDA-Public Use
  Company Number: JP-SP-2012-06191

PATIENT
  Age: 63 Year
  Sex: Male

DRUGS (3)
  1. SILODOSIN [Concomitant]
     Indication: BENIGN PROSTATIC HYPERPLASIA
  2. IMMUCYST [Suspect]
     Indication: BLADDER CANCER
     Route: 043
     Dates: start: 20101001
  3. DUTASTERIDE [Concomitant]
     Indication: BENIGN PROSTATIC HYPERPLASIA

REACTIONS (3)
  - RENAL TUBERCULOSIS [None]
  - POLLAKIURIA [None]
  - DYSURIA [None]
